FAERS Safety Report 22104481 (Version 2)
Quarter: 2023Q1

REPORT INFORMATION
  Report Type: Spontaneous
  Country: FR (occurrence: FR)
  Receive Date: 20230316
  Receipt Date: 20230328
  Transmission Date: 20230418
  Serious: Yes (Hospitalization)
  Sender: FDA-Public Use
  Company Number: None

PATIENT
  Age: 39 Year
  Sex: Male
  Weight: 70 kg

DRUGS (3)
  1. MINOXIDIL [Suspect]
     Active Substance: MINOXIDIL
     Indication: Alopecia universalis
     Dosage: APPROXIMATELY 22/OCT/2022
     Route: 003
     Dates: start: 202210
  2. SOLU-MEDROL [Suspect]
     Active Substance: METHYLPREDNISOLONE SODIUM SUCCINATE
     Indication: Alopecia universalis
     Dosage: MORNING AND EVENING
     Route: 042
     Dates: start: 20221123, end: 20221125
  3. SOLU-MEDROL [Suspect]
     Active Substance: METHYLPREDNISOLONE SODIUM SUCCINATE
     Dosage: MORNING AND EVENING
     Route: 042
     Dates: start: 20221019, end: 20221021

REACTIONS (3)
  - Hepatic cytolysis [Recovering/Resolving]
  - Product use issue [Recovering/Resolving]
  - Overdose [Unknown]

NARRATIVE: CASE EVENT DATE: 20220101
